FAERS Safety Report 5241469-2 (Version None)
Quarter: 2007Q1

REPORT INFORMATION
  Report Type: 
  Country: None (occurrence: None)
  Receive Date: 20070220
  Receipt Date: 20070216
  Transmission Date: 20070707
  Serious: Yes (Hospitalization)
  Sender: FDA-Public Use
  Company Number: US-GLAXOSMITHKLINE-A0632883A

PATIENT
  Age: 33 Year
  Sex: Female
  Weight: 170 kg

DRUGS (4)
  1. COMBIVIR [Suspect]
     Indication: HIV INFECTION
     Dosage: 1TAB TWICE PER DAY
     Route: 048
     Dates: start: 20010101
  2. KALETRA [Concomitant]
     Dosage: 2TAB TWICE PER DAY
     Dates: start: 20010101
  3. RANITIDINE [Concomitant]
     Dosage: 150MG AS REQUIRED
     Dates: start: 20061201
  4. MULTI-VITAMIN [Concomitant]
     Dates: start: 20051001

REACTIONS (4)
  - ABORTION SPONTANEOUS [None]
  - DRUG EXPOSURE DURING PREGNANCY [None]
  - ECTOPIC PREGNANCY [None]
  - SALPINGECTOMY [None]
